FAERS Safety Report 18114392 (Version 2)
Quarter: 2021Q1

REPORT INFORMATION
  Report Type: Report from Study
  Country: JP (occurrence: JP)
  Receive Date: 20200805
  Receipt Date: 20210104
  Transmission Date: 20210419
  Serious: Yes (Death)
  Sender: FDA-Public Use
  Company Number: JP-VIFOR (INTERNATIONAL) INC.-VIT-2017-10383

PATIENT
  Age: 63 Year
  Sex: Male
  Weight: 55.2 kg

DRUGS (26)
  1. DOMPERIDONE [Concomitant]
     Active Substance: DOMPERIDONE
  2. NESP [Concomitant]
     Active Substance: DARBEPOETIN ALFA
     Dates: start: 20161112, end: 20170107
  3. MOHRUS TAPE L [Concomitant]
     Active Substance: KETOPROFEN
     Dosage: 14 SHEETS
     Route: 050
  4. NESP [Concomitant]
     Active Substance: DARBEPOETIN ALFA
     Dates: start: 20161022, end: 20161105
  5. LOXONIN [Concomitant]
     Active Substance: LOXOPROFEN SODIUM
     Dosage: 14 SHEETS
     Dates: start: 20160714
  6. TEPRENONE [Concomitant]
     Active Substance: TEPRENONE
  7. AMLODIPINE BESILATE [Concomitant]
     Active Substance: AMLODIPINE BESYLATE
  8. REGPARA [Concomitant]
     Active Substance: CINACALCET HYDROCHLORIDE
     Route: 048
     Dates: end: 20170501
  9. NESP [Concomitant]
     Active Substance: DARBEPOETIN ALFA
     Dates: start: 20170408
  10. PARSABIV [Concomitant]
     Active Substance: ETELCALCETIDE HYDROCHLORIDE
     Dates: start: 20170502
  11. VELPHORO [Suspect]
     Active Substance: SUCROFERRIC OXYHYDROXIDE
     Indication: HYPERPHOSPHATAEMIA
     Route: 048
     Dates: start: 20160628
  12. PERYCIT [Concomitant]
     Active Substance: NICERITROL
  13. RENAGEL [Concomitant]
     Active Substance: SEVELAMER HYDROCHLORIDE
     Route: 048
  14. NEUROTROPIN [Concomitant]
     Active Substance: NEUROTROPIN
  15. MAXACALCITOL [Concomitant]
     Active Substance: MAXACALCITOL
     Dates: end: 20170516
  16. SENNOSIDE A+B [Concomitant]
     Active Substance: SENNOSIDES A AND B
  17. VELPHORO [Suspect]
     Active Substance: SUCROFERRIC OXYHYDROXIDE
     Indication: CHRONIC KIDNEY DISEASE
  18. NESP [Concomitant]
     Active Substance: DARBEPOETIN ALFA
     Dates: start: 20170114, end: 20170121
  19. NESP [Concomitant]
     Active Substance: DARBEPOETIN ALFA
     Dates: start: 20170211, end: 20170401
  20. MAXACALCITOL [Concomitant]
     Active Substance: MAXACALCITOL
     Dates: start: 20170518
  21. NESP [Concomitant]
     Active Substance: DARBEPOETIN ALFA
     Dates: end: 20160702
  22. NESP [Concomitant]
     Active Substance: DARBEPOETIN ALFA
     Dates: start: 20170128, end: 20170204
  23. RESTAMIN KOWA [Concomitant]
     Route: 050
  24. NESP [Concomitant]
     Active Substance: DARBEPOETIN ALFA
     Dates: start: 20160709, end: 20160917
  25. NESP [Concomitant]
     Active Substance: DARBEPOETIN ALFA
     Dates: start: 20160924, end: 20161015
  26. YOUPATCH [Concomitant]

REACTIONS (2)
  - Death [Fatal]
  - Iron deficiency anaemia [Not Recovered/Not Resolved]

NARRATIVE: CASE EVENT DATE: 20170516
